FAERS Safety Report 22951092 (Version 2)
Quarter: 2024Q1

REPORT INFORMATION
  Report Type: Spontaneous
  Country: ES (occurrence: ES)
  Receive Date: 20230916
  Receipt Date: 20240228
  Transmission Date: 20240409
  Serious: Yes (Hospitalization, Other)
  Sender: FDA-Public Use
  Company Number: ES-SANDOZ-SDZ2023ES027911

PATIENT
  Age: 41 Year
  Sex: Male
  Weight: 115.3 kg

DRUGS (3)
  1. ADALIMUMAB [Suspect]
     Active Substance: ADALIMUMAB\ISOPROPYL ALCOHOL
     Indication: Axial spondyloarthritis
     Dosage: 40 MG, Q2W
     Route: 065
     Dates: start: 202107, end: 202108
  2. DICLOFENAC [Concomitant]
     Active Substance: DICLOFENAC
     Indication: Axial spondyloarthritis
     Dosage: 75 MG, QD
     Route: 065
  3. ETORICOXIB [Concomitant]
     Active Substance: ETORICOXIB
     Indication: Axial spondyloarthritis
     Dosage: 90 MG, QD
     Route: 065
     Dates: start: 202107

REACTIONS (3)
  - Haemophagocytic lymphohistiocytosis [Unknown]
  - Visceral leishmaniasis [Recovered/Resolved]
  - Visceral leishmaniasis [Recovered/Resolved]

NARRATIVE: CASE EVENT DATE: 20210801
